FAERS Safety Report 4418312-4 (Version None)
Quarter: 2004Q3

REPORT INFORMATION
  Report Type: 
  Country: None (occurrence: None)
  Receive Date: 20040809
  Receipt Date: 20040205
  Transmission Date: 20050211
  Serious: No
  Sender: FDA-Public Use
  Company Number: US-GLAXOSMITHKLINE-A0496771A

PATIENT
  Age: 84 Year
  Sex: Male

DRUGS (4)
  1. PAXIL CR [Suspect]
     Indication: DEPRESSION
     Dosage: 12.5MG PER DAY
     Route: 048
  2. ATENOLOL [Concomitant]
  3. LOTREL [Concomitant]
  4. ZOCOR [Concomitant]

REACTIONS (1)
  - SOMNOLENCE [None]
